FAERS Safety Report 9023289 (Version 1)
Quarter: 2013Q1

REPORT INFORMATION
  Report Type: Spontaneous
  Country: US (occurrence: US)
  Receive Date: 20130120
  Receipt Date: 20130120
  Transmission Date: 20140127
  Serious: Yes (Hospitalization, Other)
  Sender: FDA-Public Use
  Company Number: US-ALLERGAN-1213836US

PATIENT
  Sex: Female

DRUGS (2)
  1. BOTOX? [Suspect]
     Indication: SKIN WRINKLING
     Dosage: UNK UNK, SINGLE
     Dates: start: 20111019, end: 20111019
  2. JUVEDERM [Suspect]
     Indication: PRODUCT USED FOR UNKNOWN INDICATION
     Dosage: UNK
     Dates: start: 20111104, end: 20111104

REACTIONS (10)
  - Dysphagia [Recovered/Resolved]
  - Myasthenia gravis [Recovered/Resolved]
  - Fatigue [Recovering/Resolving]
  - Asthenia [Recovering/Resolving]
  - Aphonia [Recovered/Resolved]
  - Myasthenic syndrome [Unknown]
  - Muscular weakness [Recovering/Resolving]
  - Eyelid ptosis [Unknown]
  - Dry eye [Unknown]
  - Photophobia [Unknown]
